FAERS Safety Report 19276235 (Version 1)
Quarter: 2021Q2

REPORT INFORMATION
  Report Type: Spontaneous
  Country: NL (occurrence: ES)
  Receive Date: 20210519
  Receipt Date: 20210519
  Transmission Date: 20210717
  Serious: Yes (Life-Threatening)
  Sender: FDA-Public Use
  Company Number: ES-FRESENIUS KABI-FK202105069

PATIENT
  Age: 10 Year
  Sex: Male

DRUGS (6)
  1. SEVOFLURANE. [Suspect]
     Active Substance: SEVOFLURANE
     Indication: ANAESTHESIA
     Route: 055
     Dates: start: 20210420, end: 20210420
  2. PROPOFOL (MANUFACTURER UNKNOWN) [Suspect]
     Active Substance: PROPOFOL
     Indication: ANAESTHESIA
     Route: 042
     Dates: start: 20210420, end: 20210420
  3. LIDOCAINE (MANUFACTURER UNKNOWN) [Suspect]
     Active Substance: LIDOCAINE
     Indication: ANAESTHESIA
     Route: 042
     Dates: start: 20210420, end: 20210420
  4. MIDAZOLAM. [Concomitant]
     Active Substance: MIDAZOLAM
     Indication: ANAESTHESIA
     Route: 042
     Dates: start: 20210420, end: 20210420
  5. REMIFENTANIL [Concomitant]
     Active Substance: REMIFENTANIL
     Indication: ANAESTHESIA
     Route: 042
     Dates: start: 20210420, end: 20210420
  6. FENTANYL. [Concomitant]
     Active Substance: FENTANYL
     Indication: ANAESTHESIA
     Route: 042
     Dates: start: 20210420, end: 20210420

REACTIONS (3)
  - Lactic acidosis [Recovered/Resolved]
  - Hypotension [Recovered/Resolved]
  - Bundle branch block right [Recovered/Resolved]

NARRATIVE: CASE EVENT DATE: 20210420
